FAERS Safety Report 19077564 (Version 1)
Quarter: 2021Q1

REPORT INFORMATION
  Report Type: Spontaneous
  Country: US (occurrence: US)
  Receive Date: 20210331
  Receipt Date: 20210331
  Transmission Date: 20210420
  Serious: No
  Sender: FDA-Public Use
  Company Number: US-TEVA-2021-US-1894778

PATIENT
  Age: 74 Year
  Sex: Female
  Weight: 77.11 kg

DRUGS (1)
  1. ARMODAFINI [Suspect]
     Active Substance: ARMODAFINIL
     Indication: SLEEP DISORDER
     Dosage: 250 MILLIGRAM DAILY;
     Route: 065
     Dates: start: 202002

REACTIONS (2)
  - Skin discolouration [Not Recovered/Not Resolved]
  - Rash [Not Recovered/Not Resolved]

NARRATIVE: CASE EVENT DATE: 202010
